FAERS Safety Report 9896317 (Version 3)
Quarter: 2014Q4

REPORT INFORMATION
  Report Type: Spontaneous
  Country: US (occurrence: US)
  Receive Date: 20140213
  Receipt Date: 20141205
  Transmission Date: 20150529
  Serious: No
  Sender: FDA-Public Use
  Company Number: US-BRISTOL-MYERS SQUIBB COMPANY-18833418

PATIENT
  Age: 62 Year
  Sex: Female
  Weight: 69.39 kg

DRUGS (7)
  1. ABATACEPT SUBQ INJECTION 125MG/ML [Suspect]
     Active Substance: ABATACEPT
     Indication: RHEUMATOID ARTHRITIS
     Dosage: EVERY THURSDAY?LAST INJ:15AUG13?LAST DOSE:24AUG14?LOT#: 3K79753 EX DATE:OCT2015
     Route: 058
     Dates: start: 201305
  2. LEXAPRO [Concomitant]
     Active Substance: ESCITALOPRAM OXALATE
  3. VIVELLE [Concomitant]
     Active Substance: ESTRADIOL
  4. METHOTREXATE [Suspect]
     Active Substance: METHOTREXATE
  5. SINGULAIR [Concomitant]
     Active Substance: MONTELUKAST SODIUM
  6. ARMOUR THYROID [Concomitant]
     Active Substance: THYROID, PORCINE\THYROID, UNSPECIFIED
     Indication: HYPOTHYROIDISM
  7. VALTRAX [Concomitant]

REACTIONS (11)
  - Injection site pain [Recovered/Resolved]
  - Phlebitis [Recovered/Resolved]
  - Constipation [Unknown]
  - Dizziness [Recovering/Resolving]
  - Nausea [Recovering/Resolving]
  - Poor venous access [Unknown]
  - Fatigue [Unknown]
  - Aphthous stomatitis [Unknown]
  - Vision blurred [Recovering/Resolving]
  - Contusion [Unknown]
  - Abdominal distension [Unknown]

NARRATIVE: CASE EVENT DATE: 20130418
